FAERS Safety Report 14848249 (Version 1)
Quarter: 2018Q2

REPORT INFORMATION
  Report Type: Spontaneous
  Country: JP (occurrence: JP)
  Receive Date: 20180504
  Receipt Date: 20180504
  Transmission Date: 20180711
  Serious: Yes (Other)
  Sender: FDA-Public Use
  Company Number: JP-SA-2018SA092676

PATIENT
  Sex: Male
  Weight: 81 kg

DRUGS (12)
  1. CARBAMAZEPINE. [Concomitant]
     Active Substance: CARBAMAZEPINE
     Route: 065
  2. IFOSFAMIDE. [Concomitant]
     Active Substance: IFOSFAMIDE
     Indication: TESTICULAR CHORIOCARCINOMA
     Route: 065
     Dates: start: 201511, end: 201511
  3. ELPLAT [Suspect]
     Active Substance: OXALIPLATIN
     Indication: EXTRAGONADAL PRIMARY NON-SEMINOMA STAGE III
     Dosage: 2 CYCLES
     Route: 041
     Dates: start: 20151209, end: 20151209
  4. GEMCITABINE HYDROCHLORIDE. [Concomitant]
     Active Substance: GEMCITABINE HYDROCHLORIDE
     Route: 065
     Dates: start: 20151209, end: 20160106
  5. DEXART [Concomitant]
     Active Substance: DEXAMETHASONE SODIUM PHOSPHATE
     Route: 065
     Dates: start: 20151209, end: 20160106
  6. GLYCEREB [Concomitant]
     Indication: TESTICULAR CHORIOCARCINOMA
     Route: 065
     Dates: start: 20151209
  7. GRANISETRON [Concomitant]
     Active Substance: GRANISETRON
     Route: 065
     Dates: start: 20151209, end: 20151230
  8. CISPLATIN. [Concomitant]
     Active Substance: CISPLATIN
     Indication: TESTICULAR CHORIOCARCINOMA
     Route: 065
     Dates: start: 20150603, end: 20151029
  9. PACLITAXEL. [Concomitant]
     Active Substance: PACLITAXEL
     Indication: TESTICULAR CHORIOCARCINOMA
     Route: 065
     Dates: start: 20150827, end: 20151029
  10. BLEOMYCIN HYDROCHLORIDE [Concomitant]
     Active Substance: BLEOMYCIN HYDROCHLORIDE
     Indication: TESTICULAR CHORIOCARCINOMA
     Route: 065
     Dates: start: 20150603, end: 20150826
  11. ELPLAT [Suspect]
     Active Substance: OXALIPLATIN
     Indication: TESTICULAR CHORIOCARCINOMA
     Dosage: 2 CYCLES
     Route: 041
     Dates: start: 20151209, end: 20151209
  12. ETOPOSIDE. [Concomitant]
     Active Substance: ETOPOSIDE
     Indication: TESTICULAR CHORIOCARCINOMA
     Route: 065
     Dates: start: 20150603, end: 20150826

REACTIONS (8)
  - Vena cava thrombosis [Unknown]
  - White blood cell count decreased [Unknown]
  - Gamma-glutamyltransferase increased [Unknown]
  - Neuropathy peripheral [Unknown]
  - Platelet count decreased [Unknown]
  - Hepatitis fulminant [Recovered/Resolved]
  - Blood bilirubin increased [Unknown]
  - Neutrophil count decreased [Unknown]

NARRATIVE: CASE EVENT DATE: 20151209
